FAERS Safety Report 13940118 (Version 2)
Quarter: 2017Q3

REPORT INFORMATION
  Report Type: Spontaneous
  Country: US (occurrence: US)
  Receive Date: 20170906
  Receipt Date: 20170906
  Transmission Date: 20171127
  Serious: No
  Sender: FDA-Public Use
  Company Number: US-BAYER-2017-162005

PATIENT
  Age: 72 Year
  Sex: Female
  Weight: 75 kg

DRUGS (2)
  1. CLARITIN [Suspect]
     Active Substance: LORATADINE
     Dosage: UNK
  2. CLARITIN-D 12 HOUR [Suspect]
     Active Substance: LORATADINE\PSEUDOEPHEDRINE SULFATE
     Dosage: UNK
     Route: 048
     Dates: end: 20170823

REACTIONS (2)
  - Drug ineffective [Unknown]
  - Upper-airway cough syndrome [Unknown]
